FAERS Safety Report 18053209 (Version 1)
Quarter: 2020Q3

REPORT INFORMATION
  Report Type: Spontaneous
  Country: FR (occurrence: FR)
  Receive Date: 20200722
  Receipt Date: 20200722
  Transmission Date: 20201103
  Serious: Yes (Hospitalization)
  Sender: FDA-Public Use
  Company Number: FR-TEVA-2020-FR-1803574

PATIENT
  Age: 86 Year
  Sex: Male
  Weight: 73 kg

DRUGS (12)
  1. PRAVASTATINE SODIQUE [Concomitant]
     Active Substance: PRAVASTATIN SODIUM
     Dosage: 20 MG
     Route: 048
  2. BACTRIM [Suspect]
     Active Substance: SULFAMETHOXAZOLE\TRIMETHOPRIM
     Indication: AORTITIS
     Dosage: 1600 MG
     Route: 042
     Dates: start: 202003, end: 20200314
  3. IMOVANE [Concomitant]
     Active Substance: ZOPICLONE
     Dosage: 3.75MG
     Route: 048
  4. ZYMAD 200 000 UI, SOLUTION BUVABLE EN AMPOULE [Concomitant]
     Dosage: 1X / WEEK FOR 1 MONTH THEN 1X / MONTH, FORM OF ADMIN. TEXT: ORAL SOLUTION IN AMPOULE, 2000000 IU
     Route: 048
  5. SPIRONOLACTONE. [Suspect]
     Active Substance: SPIRONOLACTONE
     Indication: PRODUCT USED FOR UNKNOWN INDICATION
     Dosage: 75 MG
     Route: 048
  6. AMLOR [Concomitant]
     Active Substance: AMLODIPINE BESYLATE
     Dosage: 5 MG
     Route: 048
  7. XATRAL 2,5 MG, COMPRIME PELLICULE [Concomitant]
     Active Substance: ALFUZOSIN
     Dosage: 7.5 MG
     Route: 048
  8. NOVORAPID [Concomitant]
     Active Substance: INSULIN ASPART
     Dosage: 6 IU
     Route: 042
  9. BISOPROLOL (FUMARATE DE) [Concomitant]
     Active Substance: BISOPROLOL FUMARATE
     Dosage: 2.5 MG
     Route: 048
  10. EUPANTOL 40 MG, POUDRE POUR SOLUTION INJECTABLE (IV) [Concomitant]
     Dosage: 40 MG
     Route: 042
  11. IMODIUM [Concomitant]
     Active Substance: LOPERAMIDE HYDROCHLORIDE
     Dosage: 18 MG
     Route: 048
  12. PERINDOPRIL [Concomitant]
     Active Substance: PERINDOPRIL
     Dosage: 6 MG
     Route: 048

REACTIONS (2)
  - Acute kidney injury [Recovered/Resolved]
  - Hyperkalaemia [Recovered/Resolved]

NARRATIVE: CASE EVENT DATE: 20200311
